FAERS Safety Report 4806094-3 (Version None)
Quarter: 2005Q4

REPORT INFORMATION
  Report Type: 
  Country: None (occurrence: None)
  Receive Date: 20051021
  Receipt Date: 20051007
  Transmission Date: 20060501
  Serious: Yes (Other)
  Sender: FDA-Public Use
  Company Number: CH-ROCHE-420563

PATIENT
  Age: 18 Year
  Sex: Male

DRUGS (1)
  1. ROACCUTAN [Suspect]
     Indication: ACNE CONGLOBATA
     Route: 048
     Dates: end: 20050615

REACTIONS (4)
  - APHASIA [None]
  - CEREBRAL ISCHAEMIA [None]
  - HEMIANOPIA [None]
  - MUSCLE SPASTICITY [None]
